FAERS Safety Report 9837331 (Version 1)
Quarter: 2014Q1

REPORT INFORMATION
  Report Type: Spontaneous
  Country: US (occurrence: US)
  Receive Date: 20140123
  Receipt Date: 20140123
  Transmission Date: 20141002
  Serious: No
  Sender: FDA-Public Use
  Company Number: US-PFIZER INC-2014018962

PATIENT
  Age: 60 Year
  Sex: Male

DRUGS (1)
  1. SUTENT [Suspect]
     Indication: MALIGNANT URINARY TRACT NEOPLASM
     Dosage: 37.5 MG, DAILY (12.5MG 3 CAPS DAILY)
     Dates: start: 20130923

REACTIONS (2)
  - Disease progression [Unknown]
  - Malignant urinary tract neoplasm [Unknown]
